FAERS Safety Report 22390943 (Version 1)
Quarter: 2023Q2

REPORT INFORMATION
  Report Type: Other
  Country: IN (occurrence: None)
  Receive Date: 20230601
  Receipt Date: 20230601
  Transmission Date: 20230722
  Serious: Yes (Other)
  Sender: FDA-Public Use
  Company Number: IN-ROCHE-3256774

PATIENT
  Age: 61 Year
  Sex: Female

DRUGS (1)
  1. KADCYLA [Suspect]
     Active Substance: ADO-TRASTUZUMAB EMTANSINE
     Indication: Breast cancer metastatic
     Dosage: INTERVAL 30 DAYS
     Route: 042

REACTIONS (12)
  - Pyrexia [Unknown]
  - Off label use [Unknown]
  - Inflammation [Unknown]
  - Dizziness [Unknown]
  - Gingival bleeding [Unknown]
  - Vertigo [Unknown]
  - Vomiting [Unknown]
  - Rectal haemorrhage [Unknown]
  - Joint injury [Unknown]
  - Joint swelling [Unknown]
  - Limb injury [Unknown]
  - Fall [Unknown]
